FAERS Safety Report 9732967 (Version 1)
Quarter: 2013Q4

REPORT INFORMATION
  Report Type: Spontaneous
  Country: IN (occurrence: IN)
  Receive Date: 20131205
  Receipt Date: 20131205
  Transmission Date: 20140711
  Serious: Yes (Other)
  Sender: FDA-Public Use
  Company Number: ALCN2013IN006072

PATIENT
  Age: 22 Year
  Sex: Male

DRUGS (1)
  1. NEVANAC [Suspect]
     Dosage: 1 GTT, TID
     Route: 047
     Dates: start: 20131004, end: 20131018

REACTIONS (5)
  - Ulcerative keratitis [Recovered/Resolved]
  - Corneal disorder [Recovered/Resolved]
  - Lacrimation increased [Recovered/Resolved]
  - Eye pain [Recovered/Resolved]
  - Eye irritation [Recovered/Resolved]
